FAERS Safety Report 23062444 (Version 2)
Quarter: 2023Q4

REPORT INFORMATION
  Report Type: Spontaneous
  Country: US (occurrence: US)
  Receive Date: 20231013
  Receipt Date: 20231215
  Transmission Date: 20240109
  Serious: Yes (Other)
  Sender: FDA-Public Use
  Company Number: US-002147023-NVSC2023US215862

PATIENT
  Sex: Female

DRUGS (1)
  1. VOTRIENT [Suspect]
     Active Substance: PAZOPANIB HYDROCHLORIDE
     Indication: Telangiectasia
     Dosage: 200 MG, QD
     Route: 048
     Dates: start: 202309

REACTIONS (6)
  - Thrombotic thrombocytopenic purpura [Unknown]
  - Arteriovenous malformation [Unknown]
  - Contusion [Unknown]
  - Pallor [Unknown]
  - Anaemia [Unknown]
  - Hair colour changes [Unknown]
